FAERS Safety Report 16437435 (Version 1)
Quarter: 2019Q2

REPORT INFORMATION
  Report Type: Spontaneous
  Country: IT (occurrence: IT)
  Receive Date: 20190615
  Receipt Date: 20190615
  Transmission Date: 20190711
  Serious: Yes (Hospitalization)
  Sender: FDA-Public Use
  Company Number: IT-SUN PHARMACEUTICAL INDUSTRIES LTD-2019RR-210556

PATIENT
  Age: 32 Year
  Sex: Male

DRUGS (2)
  1. TACHIPIRINA [Concomitant]
     Active Substance: ACETAMINOPHEN
     Indication: PYREXIA
     Dosage: UNK
     Route: 065
  2. CIPROFLOXACIN. [Suspect]
     Active Substance: CIPROFLOXACIN
     Indication: OROPHARYNGEAL PAIN
     Dosage: 500 MILLIGRAM, DAILY
     Route: 048
     Dates: start: 20070501, end: 20070501

REACTIONS (2)
  - Urticaria [Recovering/Resolving]
  - Epiglottic oedema [Recovering/Resolving]

NARRATIVE: CASE EVENT DATE: 20070501
